FAERS Safety Report 21674524 (Version 1)
Quarter: 2022Q4

REPORT INFORMATION
  Report Type: Report from Study
  Country: IT (occurrence: IT)
  Receive Date: 20221202
  Receipt Date: 20221202
  Transmission Date: 20230113
  Serious: Yes (Other)
  Sender: FDA-Public Use
  Company Number: IT-ABBVIE-4220975

PATIENT
  Age: 76 Year
  Sex: Male

DRUGS (2)
  1. CARBIDOPA\LEVODOPA [Suspect]
     Active Substance: CARBIDOPA\LEVODOPA
     Indication: Parkinson^s disease
     Dosage: TOTAL DAILY DOSE (MG) 1060. PUMP SETTING MD: 8+3; CR: 3 (13H); ED: 3
     Dates: start: 20170613, end: 20221125
  2. CARBIDOPA\LEVODOPA [Suspect]
     Active Substance: CARBIDOPA\LEVODOPA

REACTIONS (2)
  - Gastric ulcer [Not Recovered/Not Resolved]
  - Bezoar [Not Recovered/Not Resolved]

NARRATIVE: CASE EVENT DATE: 20221125
